FAERS Safety Report 16191312 (Version 3)
Quarter: 2019Q2

REPORT INFORMATION
  Report Type: Spontaneous
  Country: US (occurrence: US)
  Receive Date: 20190412
  Receipt Date: 20190603
  Transmission Date: 20190711
  Serious: Yes (Hospitalization)
  Sender: FDA-Public Use
  Company Number: US-ACTELION-A-US2019-186553

PATIENT
  Sex: Female

DRUGS (2)
  1. UPTRAVI [Suspect]
     Active Substance: SELEXIPAG
     Indication: PULMONARY ARTERIAL HYPERTENSION
     Dosage: 200 MCG, BID
     Route: 048
  2. WARFARIN [Concomitant]
     Active Substance: WARFARIN

REACTIONS (17)
  - Hospitalisation [Unknown]
  - Fatigue [Unknown]
  - Pain in extremity [Unknown]
  - Anaemia [Unknown]
  - Pruritus [Unknown]
  - Pollakiuria [Unknown]
  - Fluid retention [Unknown]
  - Diarrhoea [Unknown]
  - Pain [Unknown]
  - Atrial fibrillation [Unknown]
  - Decreased appetite [Unknown]
  - Flushing [Unknown]
  - Musculoskeletal pain [Unknown]
  - Renal disorder [Unknown]
  - Dyspnoea [Unknown]
  - Myalgia [Unknown]
  - Anxiety [Unknown]
